FAERS Safety Report 10473556 (Version 1)
Quarter: 2014Q3

REPORT INFORMATION
  Report Type: Report from Study
  Country: KR (occurrence: KR)
  Receive Date: 20140924
  Receipt Date: 20140924
  Transmission Date: 20150326
  Serious: Yes (Death)
  Sender: FDA-Public Use
  Company Number: KR-BAXTER-2014BAX056155

PATIENT
  Sex: Male
  Weight: 60 kg

DRUGS (2)
  1. PHYSIONEAL 1.5% [Suspect]
     Active Substance: CALCIUM CHLORIDE\DEXTROSE\MAGNESIUM CHLORIDE\SODIUM CHLORIDE SOLUTION
     Indication: RENAL FAILURE CHRONIC
     Route: 033
     Dates: start: 20060305, end: 20140916
  2. PHYSIONEAL 2.5% [Suspect]
     Active Substance: CALCIUM CHLORIDE\DEXTROSE\MAGNESIUM CHLORIDE\SODIUM CHLORIDE SOLUTION
     Indication: RENAL FAILURE CHRONIC
     Route: 033
     Dates: start: 20060305, end: 20140916

REACTIONS (1)
  - Cardiac disorder [Fatal]
